FAERS Safety Report 10401027 (Version 2)
Quarter: 2014Q3

REPORT INFORMATION
  Report Type: Spontaneous
  Country: US (occurrence: US)
  Receive Date: 20140821
  Receipt Date: 20140821
  Transmission Date: 20150326
  Serious: Yes (Other)
  Sender: FDA-Public Use
  Company Number: US-RANBAXY-2012US-56140

PATIENT
  Age: 59 Year
  Sex: Female

DRUGS (1)
  1. NITROFURANTOIN. [Suspect]
     Active Substance: NITROFURANTOIN
     Indication: URINARY RETENTION
     Dosage: 100 MG, DAILY
     Route: 065

REACTIONS (1)
  - Small fibre neuropathy [Recovering/Resolving]
